FAERS Safety Report 9194851 (Version 1)
Quarter: 2013Q1

REPORT INFORMATION
  Report Type: Spontaneous
  Country: US (occurrence: US)
  Receive Date: 20130327
  Receipt Date: 20130327
  Transmission Date: 20140127
  Serious: No
  Sender: FDA-Public Use
  Company Number: US-ALLERGAN-1208118US

PATIENT
  Age: 44 Year
  Sex: Female

DRUGS (3)
  1. LATISSE 0.03% [Suspect]
     Indication: GROWTH OF EYELASHES
     Dosage: UNK
     Route: 061
     Dates: start: 20120215
  2. LATISSE 0.03% [Suspect]
     Dosage: UNK
     Route: 061
  3. LATISSE 0.03% [Suspect]
     Route: 061

REACTIONS (4)
  - Incorrect dose administered [Unknown]
  - Skin discolouration [Recovered/Resolved]
  - Erythema of eyelid [Recovered/Resolved]
  - Drug ineffective [Unknown]
